FAERS Safety Report 8384315-0 (Version None)
Quarter: 2012Q2

REPORT INFORMATION
  Report Type: 
  Country: None (occurrence: None)
  Receive Date: 20120524
  Receipt Date: 20120516
  Transmission Date: 20120825
  Serious: Yes (Hospitalization, Other)
  Sender: FDA-Public Use
  Company Number: JP-VERTEX PHARMACEUTICALS INC.-AE-2012-004723

PATIENT
  Age: 66 Year
  Sex: Female

DRUGS (8)
  1. TELAVIC (TELAPREVIR) [Suspect]
     Indication: HEPATITIS C
     Route: 048
     Dates: start: 20120207, end: 20120417
  2. PEGINTERFERON ALFA-2B [Concomitant]
     Indication: HEPATITIS C
     Route: 051
     Dates: start: 20120207, end: 20120417
  3. RIBAVARIN [Concomitant]
     Indication: HEPATITIS C
     Route: 048
     Dates: start: 20120207, end: 20120313
  4. ACETAMINOPHEN [Concomitant]
     Route: 048
     Dates: start: 20120207
  5. LEDOLPER [Concomitant]
     Route: 048
     Dates: start: 20120207
  6. RIBAVARIN [Concomitant]
     Route: 048
     Dates: start: 20120314, end: 20120327
  7. RIBAVARIN [Concomitant]
     Route: 048
     Dates: start: 20120328, end: 20120419
  8. TELAVIC (TELAPREVIR) [Suspect]
     Route: 048
     Dates: start: 20120418, end: 20120419

REACTIONS (2)
  - MALAISE [None]
  - SKIN DISORDER [None]
